FAERS Safety Report 16385587 (Version 1)
Quarter: 2019Q2

REPORT INFORMATION
  Report Type: Spontaneous
  Country: US (occurrence: US)
  Receive Date: 20190603
  Receipt Date: 20190603
  Transmission Date: 20190711
  Serious: No
  Sender: FDA-Public Use
  Company Number: US-MYLANLABS-2019M1021840

PATIENT

DRUGS (2)
  1. TRIAMCINOLONE ACETONIDE CREAM, USP [Suspect]
     Active Substance: TRIAMCINOLONE ACETONIDE
     Indication: PRURITUS
     Dosage: UNK
     Route: 061
  2. TRIAMCINOLONE ACETONIDE CREAM, USP [Suspect]
     Active Substance: TRIAMCINOLONE ACETONIDE
     Dosage: UNK, QD (SEVERAL TIMES A DAY)
     Route: 061

REACTIONS (1)
  - Drug ineffective [Unknown]
